FAERS Safety Report 4456298-7 (Version None)
Quarter: 2004Q3

REPORT INFORMATION
  Report Type: 
  Country: None (occurrence: None)
  Receive Date: 20040922
  Receipt Date: 20040428
  Transmission Date: 20050211
  Serious: Yes (Hospitalization)
  Sender: FDA-Public Use
  Company Number: FR-MERCK-0404FRA00088

PATIENT
  Age: 65 Year
  Sex: Female

DRUGS (5)
  1. ACARBOSE [Suspect]
     Indication: DIABETES MELLITUS
     Route: 048
  2. CAPTOPRIL [Suspect]
     Route: 048
  3. CELECOXIB [Suspect]
     Route: 048
     Dates: end: 20040311
  4. INSULIN, NEUTRAL [Suspect]
     Indication: DIABETES MELLITUS
     Route: 058
  5. NOROXIN [Suspect]
     Route: 048
     Dates: end: 20040304

REACTIONS (2)
  - PRURIGO [None]
  - RASH MACULAR [None]
